FAERS Safety Report 24015760 (Version 6)
Quarter: 2024Q4

REPORT INFORMATION
  Report Type: Spontaneous
  Country: US (occurrence: US)
  Receive Date: 20240626
  Receipt Date: 20241125
  Transmission Date: 20250115
  Serious: No
  Sender: PFIZER
  Company Number: US-PFIZER INC-PV202400083467

PATIENT
  Age: 69 Year
  Sex: Male
  Weight: 85.261 kg

DRUGS (32)
  1. VYNDAMAX [Suspect]
     Active Substance: TAFAMIDIS
     Indication: Cardiac amyloidosis
     Dosage: 61 MG, 1X/DAY
     Route: 048
     Dates: start: 20240620
  2. VYNDAMAX [Suspect]
     Active Substance: TAFAMIDIS
     Dosage: 61 MG, 1X/DAY
     Route: 048
     Dates: start: 20240709
  3. VYNDAMAX [Suspect]
     Active Substance: TAFAMIDIS
     Dosage: 61 MG, 1X/DAY
     Route: 048
     Dates: start: 20240910
  4. VENTOLIN HFA [Concomitant]
     Active Substance: ALBUTEROL SULFATE
     Indication: Dyspnoea
     Dosage: TAKE 2 PUFFS BY MOUTH EVERY SIX (6) HOURS
     Route: 048
     Dates: start: 20240430
  5. VENTOLIN HFA [Concomitant]
     Active Substance: ALBUTEROL SULFATE
     Indication: Chronic obstructive pulmonary disease
  6. ALBUTEROL [Concomitant]
     Active Substance: ALBUTEROL
     Indication: Wheezing
     Dosage: TAKE 3 ML (2.5 MG TOTAL) BY NEBULIZATION EVERY 4 (FOUR) HOURS IF NEEDED
     Dates: start: 20240430
  7. ALBUTEROL [Concomitant]
     Active Substance: ALBUTEROL
     Indication: Dyspnoea
  8. ALBUTEROL [Concomitant]
     Active Substance: ALBUTEROL
     Indication: Chronic obstructive pulmonary disease
  9. ZITHROMAX [Concomitant]
     Active Substance: AZITHROMYCIN DIHYDRATE
     Dosage: 1 TABLET (500 MG, ORAL, 3 TIMES WEEKLY, TAKE ONE TABLET MONDAY, WEDNESDAY AND FRIDAY)
     Route: 048
     Dates: start: 20240319, end: 20240627
  10. ZITHROMAX [Concomitant]
     Active Substance: AZITHROMYCIN DIHYDRATE
     Dosage: 1 TABLET (500 MG, ORAL, 3 TIMES WEEKLY, TAKE ONE TABLET MONDAY, WEDNESDAY AND FRIDAY)
     Route: 048
     Dates: start: 20240904
  11. WELLBUTRIN XL [Concomitant]
     Active Substance: BUPROPION HYDROCHLORIDE
     Dosage: 150 MG 24 HR TABLET
     Dates: start: 20210429
  12. WELLBUTRIN XL [Concomitant]
     Active Substance: BUPROPION HYDROCHLORIDE
     Dosage: 150MG PO (PER ORAL) QDAY (ONCE A DAY)
     Route: 048
     Dates: start: 20210429
  13. CHOLECALCIFEROL [Concomitant]
     Active Substance: CHOLECALCIFEROL
     Indication: Supplementation therapy
     Dosage: 50 UG
     Dates: start: 20231121
  14. CHOLECALCIFEROL [Concomitant]
     Active Substance: CHOLECALCIFEROL
     Dosage: 2000 IU, DAILY
     Route: 048
     Dates: start: 20231121
  15. DICLOFENAC SODIUM [Concomitant]
     Active Substance: DICLOFENAC SODIUM
     Indication: Myalgia
     Dosage: APPLY 4 G TOPICALLY 2 PER DAY. - TOPICAL
     Route: 061
     Dates: start: 20240305
  16. CYMBALTA [Concomitant]
     Active Substance: DULOXETINE HYDROCHLORIDE
     Indication: Depression
     Dosage: 60 MG, DAILY
     Route: 048
     Dates: start: 20201105
  17. ATROVENT [Concomitant]
     Active Substance: IPRATROPIUM BROMIDE
     Indication: Nasal disorder
     Dosage: PLACED 2 SPRAYS INTO EACH NOSTRIL TWO (2) TIMES A DAY
     Route: 045
     Dates: start: 20240430
  18. ATROVENT [Concomitant]
     Active Substance: IPRATROPIUM BROMIDE
     Indication: Hypersensitivity
  19. PREDNISONE [Concomitant]
     Active Substance: PREDNISONE
     Dosage: 5 MG, 1X/DAY
     Route: 048
     Dates: start: 20240305
  20. FLOMAX [Concomitant]
     Active Substance: TAMSULOSIN HYDROCHLORIDE
     Indication: Urinary retention
     Dosage: 0.4 MG, DAILY
     Route: 048
     Dates: start: 20230630
  21. THEOPHYLLINE [Concomitant]
     Active Substance: THEOPHYLLINE
     Indication: Chronic obstructive pulmonary disease
     Dosage: 300 MG, 1X/DAY
     Route: 048
     Dates: start: 20240430
  22. STIOLTO RESPIMAT [Concomitant]
     Active Substance: OLODATEROL HYDROCHLORIDE\TIOTROPIUM BROMIDE MONOHYDRATE
     Indication: Chronic obstructive pulmonary disease
     Dosage: INHALE 2 PUFFS 1 (ONE) TIME EACH DAY
     Route: 055
     Dates: start: 20240430
  23. ETOPOSIDE [Concomitant]
     Active Substance: ETOPOSIDE
     Dosage: 230MG ON NS (NATURAL SALINE)
  24. COMPAZINE [Concomitant]
     Active Substance: PROCHLORPERAZINE MALEATE
     Dosage: 10MG PO (PER ORAL) X1 WITH CHEMO
     Route: 048
  25. SINGULAIR [Concomitant]
     Active Substance: MONTELUKAST SODIUM
     Indication: Hypersensitivity
     Dosage: 10MG  PO (PER ORAL) TAKE Q(ONCE) NIGHT
     Route: 048
     Dates: start: 20240430
  26. KLOR-CON M20 [Concomitant]
     Active Substance: POTASSIUM CHLORIDE
     Indication: Supplementation therapy
     Dosage: 40 MEQ, TAKE 2 PILLS Q (ONCE)DAY
     Route: 048
     Dates: start: 20231116
  27. PRILOSEC [Concomitant]
     Active Substance: OMEPRAZOLE MAGNESIUM
     Indication: Gastrooesophageal reflux disease
     Dosage: TAKE TWO CAPSULES BY MOUTH EVERY DAY, AT LEAST 30 MINS BEFORE BREAKFAST
     Route: 048
     Dates: start: 20240429, end: 20240923
  28. MUCINEX [Concomitant]
     Active Substance: GUAIFENESIN
     Dosage: 600 MG, ORAL, 2 TIMES DAILY
     Route: 048
     Dates: start: 20240903
  29. BUPROPION [Concomitant]
     Active Substance: BUPROPION
     Dosage: 150 MG, 1X/DAY
     Route: 048
  30. VITAMIN D3 [Concomitant]
     Active Substance: CHOLECALCIFEROL
     Dosage: 2000 IU, DAILY
     Route: 048
  31. VITAMIN D3 [Concomitant]
     Active Substance: CHOLECALCIFEROL
     Dosage: 80 UG
  32. TAMSULOSIN [Concomitant]
     Active Substance: TAMSULOSIN
     Indication: Urinary retention
     Dosage: 0.4 MG, Q (ONCE) PM
     Route: 048

REACTIONS (2)
  - Drug ineffective [Recovered/Resolved]
  - Hypoacusis [Recovered/Resolved]

NARRATIVE: CASE EVENT DATE: 20240101
